FAERS Safety Report 4683122-X (Version None)
Quarter: 2005Q2

REPORT INFORMATION
  Report Type: 
  Country: None (occurrence: None)
  Receive Date: 20050602
  Receipt Date: 20050330
  Transmission Date: 20051028
  Serious: No
  Sender: FDA-Public Use
  Company Number: USA050394408

PATIENT
  Age: 66 Year
  Sex: Female

DRUGS (7)
  1. CYMBALTA [Suspect]
     Indication: PAIN
     Dosage: 30 MG
     Dates: start: 20050301, end: 20050301
  2. HYDROCODONE BITARTRATE [Concomitant]
  3. LOTENSIN [Concomitant]
  4. AMINOPYRIDINE (FAMPRIDINE) [Concomitant]
  5. LEVOXYL (LEVOTHYROXNE SODIUM) [Concomitant]
  6. REBIF (INTERFERON BETA-1A  /00596808/) [Concomitant]
  7. BACLOFEN [Concomitant]

REACTIONS (1)
  - MUSCLE SPASMS [None]
